FAERS Safety Report 8503014-5 (Version None)
Quarter: 2012Q3

REPORT INFORMATION
  Report Type: 
  Country: None (occurrence: None)
  Receive Date: 20120711
  Receipt Date: 20120706
  Transmission Date: 20120928
  Serious: Yes (Life-Threatening, Hospitalization)
  Sender: FDA-Public Use
  Company Number: IT-ASTRAZENECA-2012SE46547

PATIENT
  Age: 27 Year
  Sex: Female

DRUGS (6)
  1. ESCITALOPRAM [Concomitant]
     Route: 048
  2. SEROQUEL [Suspect]
     Indication: DRUG ABUSE
     Dosage: 12000 MG
     Route: 048
     Dates: start: 20120305, end: 20120305
  3. OXCARBAZEPINE [Suspect]
     Indication: DRUG ABUSE
     Dosage: 4500 MG
     Route: 048
     Dates: start: 20120305, end: 20120305
  4. ZOLPIDEM TARTRATE [Concomitant]
     Route: 048
  5. LORAZEPAM [Concomitant]
     Route: 048
  6. SEREPRILE [Concomitant]
     Route: 048

REACTIONS (7)
  - AGITATION [None]
  - HEADACHE [None]
  - TACHYCARDIA [None]
  - INTENTIONAL OVERDOSE [None]
  - MYDRIASIS [None]
  - RESPIRATORY FAILURE [None]
  - DRUG ABUSE [None]
